FAERS Safety Report 23809247 (Version 1)
Quarter: 2024Q2

REPORT INFORMATION
  Report Type: Spontaneous
  Country: US (occurrence: US)
  Receive Date: 20240502
  Receipt Date: 20240502
  Transmission Date: 20240716
  Serious: No
  Sender: FDA-Public Use
  Company Number: US-UCBSA-2023014229

PATIENT
  Sex: Female

DRUGS (18)
  1. CIMZIA [Suspect]
     Active Substance: CERTOLIZUMAB PEGOL
     Indication: Product used for unknown indication
     Dosage: 400 MILLIGRAM, EV 2 WEEKS(QOW)
     Route: 058
     Dates: start: 20230103
  2. TRESIBA [Concomitant]
     Active Substance: INSULIN DEGLUDEC
  3. AMOXICILLIN [Concomitant]
     Active Substance: AMOXICILLIN
  4. ANTIPYRINE;BENZOCAINE [Concomitant]
  5. BETHANECHOL [Concomitant]
     Active Substance: BETHANECHOL
  6. CEPHALEXIN [Concomitant]
     Active Substance: CEPHALEXIN
  7. CITALOPRAM [Concomitant]
     Active Substance: CITALOPRAM\CITALOPRAM HYDROBROMIDE
  8. CLOPIDOGREL [Concomitant]
     Active Substance: CLOPIDOGREL BISULFATE
  9. FENOFIBRATE [Concomitant]
     Active Substance: FENOFIBRATE
  10. GABAPENTIN [Concomitant]
     Active Substance: GABAPENTIN
  11. ACETAMINOPHEN\HYDROCODONE [Concomitant]
     Active Substance: ACETAMINOPHEN\HYDROCODONE
  12. LEVEMIR [Concomitant]
     Active Substance: INSULIN DETEMIR
  13. HYDROCHLOROTHIAZIDE\LISINOPRIL [Concomitant]
     Active Substance: HYDROCHLOROTHIAZIDE\LISINOPRIL
  14. METFORMIN [Concomitant]
     Active Substance: METFORMIN HYDROCHLORIDE
  15. METHOTREXATE [Concomitant]
     Active Substance: METHOTREXATE
  16. NITROSTAT [Concomitant]
     Active Substance: NITROGLYCERIN
  17. NOVOLOG [Concomitant]
     Active Substance: INSULIN ASPART
  18. SIMVASTATIN [Concomitant]
     Active Substance: SIMVASTATIN

REACTIONS (2)
  - Nasopharyngitis [Unknown]
  - Depression [Unknown]
